FAERS Safety Report 14413166 (Version 1)
Quarter: 2018Q1

REPORT INFORMATION
  Report Type: Spontaneous
  Country: US (occurrence: US)
  Receive Date: 20180119
  Receipt Date: 20180119
  Transmission Date: 20180509
  Serious: No
  Sender: FDA-Public Use
  Company Number: US-DSJP-DSU-2017-153852

PATIENT
  Age: 60 Year
  Sex: Female

DRUGS (2)
  1. MORPHABOND ER [Suspect]
     Active Substance: MORPHINE SULFATE
     Indication: PRODUCT USED FOR UNKNOWN INDICATION
     Dosage: HALF TABLET (15 MG), UNK
     Route: 048
  2. TIZANIDINE. [Interacting]
     Active Substance: TIZANIDINE
     Indication: HYPOTONIA
     Dosage: UNK
     Route: 048

REACTIONS (6)
  - Back pain [Unknown]
  - Neck pain [Unknown]
  - Drug administration error [Unknown]
  - Somnolence [Unknown]
  - Drug interaction [Unknown]
  - Chest pain [Unknown]
